FAERS Safety Report 18501217 (Version 1)
Quarter: 2020Q4

REPORT INFORMATION
  Report Type: Report from Study
  Country: SE (occurrence: SE)
  Receive Date: 20201113
  Receipt Date: 20201113
  Transmission Date: 20210114
  Serious: Yes (Other)
  Sender: FDA-Public Use
  Company Number: PHHO2016SE003163

PATIENT
  Age: 59 Year
  Sex: Female
  Weight: 81.6 kg

DRUGS (13)
  1. IBUPROFEN. [Concomitant]
     Active Substance: IBUPROFEN
     Indication: NASOPHARYNGITIS
  2. VAGIFEM [Concomitant]
     Active Substance: ESTRADIOL
     Indication: PROPHYLAXIS
     Dosage: 10 UC, TIS
     Route: 065
     Dates: start: 20090201
  3. OXITETRACYCLIN [Concomitant]
     Indication: OTITIS EXTERNA
     Dosage: 3 OTHER, TID
     Route: 001
     Dates: start: 20150410, end: 20150505
  4. IBUPROFEN. [Concomitant]
     Active Substance: IBUPROFEN
     Indication: MIGRAINE
     Dosage: 400 MG, PRN
     Route: 048
     Dates: start: 19900601
  5. OTRIVIN [Concomitant]
     Active Substance: XYLOMETAZOLINE
     Indication: NASAL OBSTRUCTION
     Dosage: 1 ML, PRN
     Route: 055
     Dates: start: 19990601
  6. IPRATROPIUM [Concomitant]
     Active Substance: IPRATROPIUM
     Indication: NASOPHARYNGITIS
     Dosage: 1 ML, PRN
     Route: 055
     Dates: start: 20141002, end: 20141008
  7. IPRATROPIUM [Concomitant]
     Active Substance: IPRATROPIUM
     Dosage: 1 ML, PRN
     Route: 055
     Dates: start: 20150130, end: 20150204
  8. SIPONIMOD [Suspect]
     Active Substance: SIPONIMOD
     Indication: SECONDARY PROGRESSIVE MULTIPLE SCLEROSIS
     Dosage: UNK
     Route: 048
     Dates: start: 20141029, end: 20160217
  9. XYLOMETAZOLIN [Concomitant]
     Active Substance: XYLOMETAZOLINE HYDROCHLORIDE
     Indication: NASOPHARYNGITIS
     Dosage: 1 ML, PRN
     Route: 055
     Dates: start: 20150130, end: 20150204
  10. ECHINACEA PURPUREA [Concomitant]
     Active Substance: ECHINACEA PURPUREA WHOLE
     Indication: NASOPHARYNGITIS
     Dosage: 5 ML, PRN
     Route: 048
     Dates: start: 20150307, end: 20150308
  11. OTRIVIN [Concomitant]
     Active Substance: XYLOMETAZOLINE
     Indication: NASOPHARYNGITIS
  12. HYDROCORTISONE. [Concomitant]
     Active Substance: HYDROCORTISONE
     Indication: OTITIS EXTERNA
     Dosage: 3 OTHER, TID
     Route: 001
     Dates: start: 20150410, end: 20150505
  13. FLUARIX NOS [Concomitant]
     Active Substance: INFLUENZA VIRUS VACCINE
     Indication: PROPHYLAXIS
     Dosage: 0.5 ML, QD
     Route: 030
     Dates: start: 20141106

REACTIONS (1)
  - Basal cell carcinoma [Recovered/Resolved]

NARRATIVE: CASE EVENT DATE: 20160210
